FAERS Safety Report 19048082 (Version 1)
Quarter: 2021Q1

REPORT INFORMATION
  Report Type: Spontaneous
  Country: US (occurrence: US)
  Receive Date: 20210323
  Receipt Date: 20210323
  Transmission Date: 20210420
  Serious: Yes (Other)
  Sender: FDA-Public Use
  Company Number: NVSC2021US058972

PATIENT
  Age: 46 Year
  Sex: Female

DRUGS (4)
  1. LETROZOLE. [Suspect]
     Active Substance: LETROZOLE
     Indication: BREAST CANCER METASTATIC
     Dosage: 2.5 MG, QD
     Route: 065
  2. FULVESTRANT. [Concomitant]
     Active Substance: FULVESTRANT
     Indication: PRODUCT USED FOR UNKNOWN INDICATION
     Route: 065
  3. DENOSUMAB [Concomitant]
     Active Substance: DENOSUMAB
     Indication: METASTASES TO BONE
     Dosage: UNK
     Route: 065
     Dates: start: 201705
  4. RIBOCICLIB. [Suspect]
     Active Substance: RIBOCICLIB
     Indication: BREAST CANCER METASTATIC
     Dosage: 600 MG D1?21 Q28 DAYS OVARIAN SUPPRESSION WITH GOSERELIN 19 CYCLES
     Route: 065

REACTIONS (9)
  - Fatigue [Unknown]
  - Breast cancer metastatic [Unknown]
  - Tenderness [Unknown]
  - Loss of consciousness [Unknown]
  - Musculoskeletal discomfort [Unknown]
  - Malignant neoplasm progression [Unknown]
  - Anaemia [Unknown]
  - Tumour marker increased [Unknown]
  - Bone pain [Unknown]

NARRATIVE: CASE EVENT DATE: 201810
